FAERS Safety Report 20354629 (Version 25)
Quarter: 2023Q2

REPORT INFORMATION
  Report Type: Report from Study
  Country: US (occurrence: US)
  Receive Date: 20220120
  Receipt Date: 20230404
  Transmission Date: 20230721
  Serious: No
  Sender: FDA-Public Use
  Company Number: US-NOVARTISTESTPH-NVSC2022US011458

PATIENT
  Sex: Female
  Weight: 75.737 kg

DRUGS (14)
  1. TREPROSTINIL [Suspect]
     Active Substance: TREPROSTINIL
     Indication: Pulmonary arterial hypertension
     Dosage: UNK, CONT (25 NG/KG/ MIN)
     Route: 042
     Dates: start: 20220107
  2. TREPROSTINIL [Suspect]
     Active Substance: TREPROSTINIL
     Dosage: UNK, CONT (28 NG/KG/ MIN)
     Route: 042
  3. TREPROSTINIL [Suspect]
     Active Substance: TREPROSTINIL
     Dosage: UNK, CONT (30 NG/KG/ MIN)
     Route: 042
  4. TREPROSTINIL [Suspect]
     Active Substance: TREPROSTINIL
     Dosage: UNK, CONT (32 NG/KG/ MIN)
     Route: 042
  5. TREPROSTINIL [Suspect]
     Active Substance: TREPROSTINIL
     Dosage: UNK, CONT 38 NG/KG/ MIN
     Route: 042
  6. TREPROSTINIL [Suspect]
     Active Substance: TREPROSTINIL
     Dosage: UNK, CONT 43 NG/KG/ MIN
     Route: 042
  7. TREPROSTINIL [Suspect]
     Active Substance: TREPROSTINIL
     Dosage: UNK CONT (50 NG/KG/ MIN)
     Route: 042
     Dates: start: 20220107
  8. TREPROSTINIL [Suspect]
     Active Substance: TREPROSTINIL
     Dosage: UNK, 53 NG/KG/MIN
     Route: 065
     Dates: start: 20230211
  9. TREPROSTINIL [Suspect]
     Active Substance: TREPROSTINIL
     Dosage: 50 NG/KG/ MI N, CONT
     Route: 042
  10. TREPROSTINIL [Suspect]
     Active Substance: TREPROSTINIL
     Dosage: UNK, CONT (53 NG/KG/ MIN)
     Route: 042
     Dates: start: 20220107
  11. REMODULIN [Suspect]
     Active Substance: TREPROSTINIL
     Indication: Pulmonary arterial hypertension
     Dosage: CONT (0.021 UG/KG)
     Route: 041
     Dates: start: 20211110
  12. TADALAFIL [Suspect]
     Active Substance: TADALAFIL
     Indication: Product used for unknown indication
     Dosage: UNK
     Route: 065
  13. TYLENOL [Suspect]
     Active Substance: ACETAMINOPHEN
     Indication: Pain
     Dosage: UNK
     Route: 065
  14. ETHACRYNIC ACID [Concomitant]
     Active Substance: ETHACRYNIC ACID
     Indication: Product used for unknown indication
     Dosage: UNK
     Route: 065

REACTIONS (27)
  - Flatulence [Unknown]
  - Vision blurred [Unknown]
  - Weight decreased [Unknown]
  - Swelling [Unknown]
  - Weight increased [Unknown]
  - Urine output decreased [Unknown]
  - Pollakiuria [Unknown]
  - Liver function test increased [Unknown]
  - Joint stiffness [Unknown]
  - Fluid retention [Unknown]
  - Crying [Unknown]
  - Panic attack [Unknown]
  - Gait disturbance [Unknown]
  - Pain [Unknown]
  - Periarthritis [Unknown]
  - Joint swelling [Unknown]
  - Peripheral swelling [Unknown]
  - Musculoskeletal stiffness [Unknown]
  - Device leakage [Unknown]
  - Hypotension [Unknown]
  - Diarrhoea [Unknown]
  - Headache [Unknown]
  - Dizziness [Unknown]
  - Pain in jaw [Unknown]
  - Arthralgia [Unknown]
  - Infusion site scab [Unknown]
  - Drug ineffective [Unknown]
